FAERS Safety Report 7610012-2 (Version None)
Quarter: 2011Q3

REPORT INFORMATION
  Report Type: 
  Country: None (occurrence: None)
  Receive Date: 20110714
  Receipt Date: 20110701
  Transmission Date: 20111222
  Serious: Yes (Hospitalization)
  Sender: FDA-Public Use
  Company Number: US-AMGEN-USASP2011033693

PATIENT
  Age: 57 Year
  Sex: Female

DRUGS (4)
  1. STELARA [Concomitant]
  2. ANTIINFLAMMATORY AGENTS [Concomitant]
  3. NAPROSYN [Concomitant]
  4. ENBREL [Suspect]
     Indication: PSORIATIC ARTHROPATHY
     Dosage: 50 MG, UNK
     Dates: start: 20030101, end: 20101201

REACTIONS (6)
  - BIOPSY [None]
  - DRUG INEFFECTIVE [None]
  - PSORIATIC ARTHROPATHY [None]
  - ARTHRITIS [None]
  - BREAST CYST [None]
  - IMPAIRED HEALING [None]
